FAERS Safety Report 20426147 (Version 1)
Quarter: 2022Q1

REPORT INFORMATION
  Report Type: Report from Study
  Country: US (occurrence: US)
  Receive Date: 20220204
  Receipt Date: 20220204
  Transmission Date: 20220424
  Serious: No
  Sender: FDA-Public Use
  Company Number: US-EXELIXIS-CABO-21041504

PATIENT
  Sex: Male
  Weight: 90.703 kg

DRUGS (1)
  1. COMETRIQ [Suspect]
     Active Substance: CABOZANTINIB S-MALATE
     Indication: Thyroid cancer
     Dosage: 140 MG, QD (3 CAPSULES OF 20MG WITH 1 CAPSULE OF 80 MG)
     Route: 048
     Dates: start: 20210527

REACTIONS (1)
  - Adverse event [Unknown]
